FAERS Safety Report 13235832 (Version 1)
Quarter: 2017Q1

REPORT INFORMATION
  Report Type: Spontaneous
  Country: CA (occurrence: CA)
  Receive Date: 20170215
  Receipt Date: 20170215
  Transmission Date: 20170428
  Serious: Yes (Hospitalization, Other)
  Sender: FDA-Public Use
  Company Number: CA-BAYER-2017-029926

PATIENT
  Age: 21 Year
  Sex: Female

DRUGS (1)
  1. MIRENA [Suspect]
     Active Substance: LEVONORGESTREL
     Dosage: 20 MCG/24HR, CONT
     Route: 015

REACTIONS (7)
  - Haemorrhage in pregnancy [None]
  - Ectopic pregnancy with contraceptive device [None]
  - Drug ineffective [None]
  - Pain [None]
  - Pelvic pain [None]
  - Ruptured ectopic pregnancy [None]
  - Device dislocation [None]
